FAERS Safety Report 9094086 (Version 2)
Quarter: 2013Q1

REPORT INFORMATION
  Report Type: Spontaneous
  Country: US (occurrence: US)
  Receive Date: 20130219
  Receipt Date: 20130225
  Transmission Date: 20140127
  Serious: Yes (Other)
  Sender: FDA-Public Use
  Company Number: US-BAYER-2013-019789

PATIENT
  Age: 55 Year
  Sex: Female

DRUGS (2)
  1. GADAVIST [Suspect]
     Indication: NUCLEAR MAGNETIC RESONANCE IMAGING BRAIN
     Dosage: 12 ML, ONCE
     Dates: start: 20130211, end: 20130211
  2. GADAVIST [Suspect]
     Indication: VERTIGO

REACTIONS (4)
  - Nausea [None]
  - Oropharyngeal discomfort [None]
  - Respiratory tract congestion [None]
  - Wheezing [None]
